FAERS Safety Report 25874694 (Version 1)
Quarter: 2025Q4

REPORT INFORMATION
  Report Type: Spontaneous
  Country: GB (occurrence: GB)
  Receive Date: 20251002
  Receipt Date: 20251002
  Transmission Date: 20260117
  Serious: Yes (Hospitalization, Other)
  Sender: ELI LILLY AND COMPANY
  Company Number: None

PATIENT
  Age: 31 Year
  Sex: Female
  Weight: 98 kg

DRUGS (11)
  1. MOUNJARO [Suspect]
     Active Substance: TIRZEPATIDE
     Indication: Weight control
     Dosage: 10 MG, WEEKLY (1/W)
     Route: 065
     Dates: end: 20250917
  2. MOUNJARO [Suspect]
     Active Substance: TIRZEPATIDE
     Indication: Weight control
     Dosage: 10 MG, WEEKLY (1/W)
     Route: 065
     Dates: end: 20250917
  3. MOUNJARO [Suspect]
     Active Substance: TIRZEPATIDE
     Dosage: UNK, WEEKLY (1/W)
     Route: 065
  4. MOUNJARO [Suspect]
     Active Substance: TIRZEPATIDE
     Dosage: UNK, WEEKLY (1/W)
     Route: 065
  5. FORMOTEROL [Concomitant]
     Active Substance: FORMOTEROL
     Indication: Asthma
  6. DIAZEPAM [Concomitant]
     Active Substance: DIAZEPAM
     Indication: Mental disorder
     Dosage: UNK
  7. LANSOPRAZOLE [Concomitant]
     Active Substance: LANSOPRAZOLE
     Indication: Gastrooesophageal reflux disease
  8. PREGABALIN [Concomitant]
     Active Substance: PREGABALIN
     Indication: Pain
  9. PROMETHAZINE [Concomitant]
     Active Substance: PROMETHAZINE HYDROCHLORIDE
     Indication: Mental disorder
     Dosage: UNK
  10. ALBUTEROL [Concomitant]
     Active Substance: ALBUTEROL
     Indication: Asthma
     Dosage: UNK
  11. BECLOMETHASONE [Concomitant]
     Active Substance: BECLOMETHASONE
     Indication: Asthma

REACTIONS (3)
  - Intestinal obstruction [Not Recovered/Not Resolved]
  - Ileus [Not Recovered/Not Resolved]
  - Drug titration error [Unknown]

NARRATIVE: CASE EVENT DATE: 20250914
